FAERS Safety Report 23648127 (Version 1)
Quarter: 2024Q1

REPORT INFORMATION
  Report Type: Spontaneous
  Country: FR (occurrence: FR)
  Receive Date: 20240319
  Receipt Date: 20240319
  Transmission Date: 20240410
  Serious: Yes (Life-Threatening)
  Sender: FDA-Public Use
  Company Number: None

PATIENT
  Age: 56 Year
  Sex: Male
  Weight: 75 kg

DRUGS (7)
  1. VALIUM [Suspect]
     Active Substance: DIAZEPAM
     Indication: Psychomotor hyperactivity
     Dosage: VALIUM 10 MG/2 ML, SOLUTION INJECTABLE; IN TOTAL
     Route: 050
     Dates: start: 20240222, end: 20240222
  2. ACUPAN [Suspect]
     Active Substance: NEFOPAM HYDROCHLORIDE
     Indication: Psychomotor hyperactivity
     Dosage: NON PRECISEE
     Route: 050
     Dates: start: 20240222, end: 20240222
  3. LOXAPINE [Suspect]
     Active Substance: LOXAPINE
     Indication: Psychomotor hyperactivity
     Dosage: 50 MG/2 ML, SOLUTION INJECTABLE EN AMPOULE; IN TOTAL
     Route: 050
     Dates: start: 20240222, end: 20240222
  4. OXAZEPAM [Suspect]
     Active Substance: OXAZEPAM
     Indication: Psychomotor hyperactivity
     Dosage: ; IN TOTAL
     Route: 050
     Dates: start: 20240222, end: 20240222
  5. MORPHINE [Suspect]
     Active Substance: MORPHINE
     Indication: Psychomotor hyperactivity
     Dosage: CF COMMENTAIRES
     Route: 050
     Dates: start: 20240222, end: 20240223
  6. IMOVANE [Suspect]
     Active Substance: ZOPICLONE
     Indication: Psychomotor hyperactivity
     Dosage: 3.75 MG, FILM-COATED TABLET; IN TOTAL
     Route: 050
     Dates: start: 20240222, end: 20240222
  7. TIAPRIDE HYDROCHLORIDE [Suspect]
     Active Substance: TIAPRIDE HYDROCHLORIDE
     Indication: Psychomotor hyperactivity
     Dosage: 100 MG/2 ML, SOLUTION INJECTABLE; IN TOTAL
     Route: 050
     Dates: start: 20240222, end: 20240222

REACTIONS (3)
  - Coma [Recovered/Resolved]
  - Toxicity to various agents [Recovered/Resolved]
  - Bradypnoea [Recovered/Resolved]

NARRATIVE: CASE EVENT DATE: 20240222
